FAERS Safety Report 15672637 (Version 5)
Quarter: 2019Q1

REPORT INFORMATION
  Report Type: Report from Study
  Country: US (occurrence: US)
  Receive Date: 20181129
  Receipt Date: 20190225
  Transmission Date: 20190417
  Serious: Yes (Hospitalization)
  Sender: FDA-Public Use
  Company Number: US-TESAROUBC-US-2018TSO02816

PATIENT
  Age: 53 Year
  Sex: Female

DRUGS (3)
  1. ZEJULA [Suspect]
     Active Substance: NIRAPARIB
     Indication: OVARIAN CANCER
     Dosage: 100 MG, QD
     Route: 048
     Dates: start: 201708
  2. TYLENOL [Suspect]
     Active Substance: ACETAMINOPHEN
     Indication: PRODUCT USED FOR UNKNOWN INDICATION
  3. ZEJULA [Suspect]
     Active Substance: NIRAPARIB
     Dosage: 200 MG, QD (QPM)
     Route: 048
     Dates: start: 20170810

REACTIONS (24)
  - Feeling abnormal [Unknown]
  - Nasopharyngitis [Unknown]
  - Inflammation [Unknown]
  - Neuropathy peripheral [Not Recovered/Not Resolved]
  - Bone pain [Unknown]
  - Chills [Unknown]
  - Cough [Recovering/Resolving]
  - Rash [Not Recovered/Not Resolved]
  - Pyrexia [Not Recovered/Not Resolved]
  - Malaise [Recovering/Resolving]
  - Procedural pain [Not Recovered/Not Resolved]
  - Sepsis [Unknown]
  - Arthralgia [Not Recovered/Not Resolved]
  - White blood cell count decreased [Recovered/Resolved]
  - Ear pain [Unknown]
  - Rash generalised [Not Recovered/Not Resolved]
  - Nasal oedema [Unknown]
  - Myalgia [Recovered/Resolved]
  - Liver function test abnormal [Recovered/Resolved]
  - Skin burning sensation [Recovered/Resolved]
  - Skin lesion [Not Recovered/Not Resolved]
  - Oropharyngeal pain [Unknown]
  - Lip swelling [Unknown]
  - Staphylococcal infection [Recovered/Resolved]

NARRATIVE: CASE EVENT DATE: 2018
